FAERS Safety Report 16319761 (Version 1)
Quarter: 2019Q2

REPORT INFORMATION
  Report Type: Spontaneous
  Country: US (occurrence: US)
  Receive Date: 20190516
  Receipt Date: 20190516
  Transmission Date: 20190711
  Serious: No
  Sender: FDA-Public Use
  Company Number: US-ACLARIS THERAPEUTICS-2018US013166

PATIENT
  Age: 48 Year
  Sex: Female

DRUGS (1)
  1. RHOFADE [Suspect]
     Active Substance: OXYMETAZOLINE HYDROCHLORIDE
     Indication: ROSACEA
     Dosage: UNK UNK, DAILY
     Route: 061
     Dates: start: 201812, end: 201812

REACTIONS (2)
  - Application site rash [Recovered/Resolved]
  - Application site paraesthesia [Recovered/Resolved]

NARRATIVE: CASE EVENT DATE: 201812
